FAERS Safety Report 5092745-8 (Version None)
Quarter: 2006Q3

REPORT INFORMATION
  Report Type: 
  Country: None (occurrence: None)
  Receive Date: 20060825
  Receipt Date: 20060815
  Transmission Date: 20061208
  Serious: Yes (Death)
  Sender: FDA-Public Use
  Company Number: GXBR2006US01579

PATIENT
  Age: 36 Year
  Sex: Female
  Weight: 113.4 kg

DRUGS (15)
  1. IMIPRAMINE HCL [Suspect]
     Indication: DEPRESSION
     Dosage: 200 MG, QHS, ORAL
     Route: 048
     Dates: start: 20050901
  2. METHADONE HYDROCHLORIDE [Suspect]
     Indication: DRUG ABUSER
     Dosage: 140 MG, QD, ORAL
     Route: 048
     Dates: start: 20060201
  3. SEROQUEL [Concomitant]
  4. METFORMIN [Concomitant]
  5. LEVOXYL [Concomitant]
  6. BUPROPION HCL [Concomitant]
  7. GABAPENTIN [Concomitant]
  8. TRAZODONE HCL [Concomitant]
  9. DIAZEPAM [Concomitant]
  10. ZYRTEC [Concomitant]
  11. AVELOX [Concomitant]
  12. LIDODERM [Concomitant]
  13. SINGULAIR [Concomitant]
  14. LYRICA [Concomitant]
  15. PERCOCET [Concomitant]

REACTIONS (11)
  - ABNORMAL BEHAVIOUR [None]
  - BLOOD UREA DECREASED [None]
  - CARBON DIOXIDE INCREASED [None]
  - DISORIENTATION [None]
  - DRUG TOXICITY [None]
  - DYSARTHRIA [None]
  - ELECTROCARDIOGRAM T WAVE AMPLITUDE DECREASED [None]
  - HEPATIC STEATOSIS [None]
  - PAIN [None]
  - PSYCHIATRIC EVALUATION ABNORMAL [None]
  - THINKING ABNORMAL [None]
